FAERS Safety Report 13889197 (Version 1)
Quarter: 2017Q3

REPORT INFORMATION
  Report Type: Spontaneous
  Country: CN (occurrence: CN)
  Receive Date: 20170821
  Receipt Date: 20170821
  Transmission Date: 20171127
  Serious: Yes (Hospitalization)
  Sender: FDA-Public Use
  Company Number: CN-009507513-1708CHN008573

PATIENT
  Age: 5 Month
  Sex: Male
  Weight: 9 kg

DRUGS (7)
  1. SODIUM CHLORIDE. [Concomitant]
     Active Substance: SODIUM CHLORIDE
     Dosage: 27 ML, QID
     Route: 041
     Dates: start: 20170620, end: 20170622
  2. SODIUM CHLORIDE. [Concomitant]
     Active Substance: SODIUM CHLORIDE
     Dosage: 50 ML, QID
     Route: 041
     Dates: start: 20170622, end: 20170626
  3. IMIPENEM AND CILASTATIN [Suspect]
     Active Substance: CILASTATIN SODIUM\IMIPENEM
     Indication: LUNG INFECTION
     Dosage: 0.38 G, TID
     Route: 041
     Dates: start: 20170613, end: 20170618
  4. IMIPENEM AND CILASTATIN [Suspect]
     Active Substance: CILASTATIN SODIUM\IMIPENEM
     Dosage: 0.5 G, QID
     Route: 041
     Dates: start: 20170622, end: 20170626
  5. SODIUM CHLORIDE. [Concomitant]
     Active Substance: SODIUM CHLORIDE
     Indication: LUNG INFECTION
     Dosage: 38 ML, TID
     Route: 041
     Dates: start: 20170613, end: 20170618
  6. IMIPENEM AND CILASTATIN [Suspect]
     Active Substance: CILASTATIN SODIUM\IMIPENEM
     Dosage: 0.27 G, QID
     Route: 041
     Dates: start: 20170618, end: 20170622
  7. SODIUM CHLORIDE. [Concomitant]
     Active Substance: SODIUM CHLORIDE
     Dosage: 50 ML, QID
     Route: 041
     Dates: start: 20170618, end: 20170620

REACTIONS (1)
  - Dysbacteriosis [Not Recovered/Not Resolved]

NARRATIVE: CASE EVENT DATE: 20170626
